FAERS Safety Report 7040826-1 (Version None)
Quarter: 2010Q4

REPORT INFORMATION
  Report Type: 
  Country: None (occurrence: None)
  Receive Date: 20101013
  Receipt Date: 20101005
  Transmission Date: 20110411
  Serious: No
  Sender: FDA-Public Use
  Company Number: 2009BI008867

PATIENT
  Sex: Male

DRUGS (3)
  1. TYSABRI [Suspect]
     Indication: MULTIPLE SCLEROSIS
     Route: 042
     Dates: start: 20090113, end: 20090519
  2. AVONEX [Concomitant]
     Indication: MULTIPLE SCLEROSIS
     Route: 030
     Dates: start: 20100101
  3. IBUPROFEN [Concomitant]
     Indication: PAIN

REACTIONS (18)
  - ARTHRALGIA [None]
  - CEREBRAL ATROPHY [None]
  - DEFAECATION URGENCY [None]
  - DEVICE OCCLUSION [None]
  - DRUG INEFFECTIVE [None]
  - DYSPHAGIA [None]
  - FURUNCLE [None]
  - GAIT DISTURBANCE [None]
  - GASTRIC HAEMORRHAGE [None]
  - GASTRITIS [None]
  - IMPAIRED GASTRIC EMPTYING [None]
  - MUSCULAR WEAKNESS [None]
  - NAUSEA [None]
  - OESOPHAGEAL HAEMORRHAGE [None]
  - OESOPHAGITIS [None]
  - PAIN IN EXTREMITY [None]
  - THROAT TIGHTNESS [None]
  - VOMITING [None]
